FAERS Safety Report 12591421 (Version 1)
Quarter: 2016Q3

REPORT INFORMATION
  Report Type: Spontaneous
  Country: US (occurrence: None)
  Receive Date: 20160725
  Receipt Date: 20160725
  Transmission Date: 20161109
  Serious: Yes (Disabling)
  Sender: FDA-Public Use
  Company Number: None

PATIENT
  Age: 65 Year
  Sex: Male
  Weight: 205 kg

DRUGS (8)
  1. 1-DAY OVER 65 VITAMIN [Concomitant]
  2. CINNAMON. [Concomitant]
     Active Substance: CINNAMON
  3. ASPIRIN. [Concomitant]
     Active Substance: ASPIRIN
  4. LAMOTRIGINE, 100 MG [Suspect]
     Active Substance: LAMOTRIGINE
     Indication: SEIZURE
     Route: 048
     Dates: start: 20160517
  5. SIMVASTAIN [Concomitant]
  6. FLUOXETINE [Concomitant]
     Active Substance: FLUOXETINE HYDROCHLORIDE
  7. ALFUZOSIN [Concomitant]
     Active Substance: ALFUZOSIN
  8. PANTOPRAZOLE [Concomitant]
     Active Substance: PANTOPRAZOLE SODIUM

REACTIONS (1)
  - Blood pressure increased [None]

NARRATIVE: CASE EVENT DATE: 20160517
